FAERS Safety Report 9744975 (Version 1)
Quarter: 2013Q4

REPORT INFORMATION
  Report Type: Spontaneous
  Country: FR (occurrence: FR)
  Receive Date: 20131211
  Receipt Date: 20131211
  Transmission Date: 20140711
  Serious: Yes (Hospitalization)
  Sender: FDA-Public Use
  Company Number: PHHY2013FR143241

PATIENT
  Age: 79 Year
  Sex: Male

DRUGS (4)
  1. AMOXICILLIN CLAVULANIC ACID SANDOZ [Suspect]
     Dosage: 4 DF, QD
     Route: 042
     Dates: start: 20130906, end: 20130910
  2. TRAMADOL [Suspect]
     Route: 048
     Dates: start: 20130906, end: 20130910
  3. PRIMPERAN [Concomitant]
     Route: 065
  4. TARDYFERON [Concomitant]
     Route: 065

REACTIONS (2)
  - Cholestasis [Recovered/Resolved]
  - Jaundice [Recovered/Resolved]
